FAERS Safety Report 9174862 (Version 1)
Quarter: 2013Q1

REPORT INFORMATION
  Report Type: Spontaneous
  Country: US (occurrence: None)
  Receive Date: 20130318
  Receipt Date: 20130318
  Transmission Date: 20140127
  Serious: Yes (Other)
  Sender: FDA-Public Use
  Company Number: GB-DEXPHARM-20130083

PATIENT
  Age: 85 Year
  Sex: Female
  Weight: 65 kg

DRUGS (5)
  1. OMEPRAZOLE [Suspect]
     Dates: start: 20130211
  2. ADIZEM-SR [Concomitant]
  3. CODEINE PHOSPHATE [Concomitant]
  4. GAVISCON ADVANCE [Concomitant]
  5. TOLTERODINE TARTARATE [Concomitant]

REACTIONS (1)
  - Arthralgia [None]
